FAERS Safety Report 8363537-9 (Version None)
Quarter: 2012Q2

REPORT INFORMATION
  Report Type: 
  Country: None (occurrence: None)
  Receive Date: 20120516
  Receipt Date: 20120510
  Transmission Date: 20120825
  Serious: Yes (Hospitalization, Other)
  Sender: FDA-Public Use
  Company Number: PHHY2012JP033815

PATIENT
  Sex: Male
  Weight: 41 kg

DRUGS (8)
  1. EXELON [Suspect]
     Indication: DEMENTIA ALZHEIMER'S TYPE
     Dosage: 4.5 MG, DAILY
     Route: 062
     Dates: start: 20111007, end: 20111103
  2. EXELON [Suspect]
     Dosage: 13.5 MG, DAILY
     Route: 062
     Dates: start: 20111201, end: 20120224
  3. OMEPRAZOLE [Concomitant]
     Route: 048
  4. ZOLPIDEM [Concomitant]
     Route: 048
  5. YOKUKAN-SAN [Concomitant]
     Dosage: 5 G, UNK
     Route: 048
     Dates: start: 20110415, end: 20111007
  6. EXELON [Suspect]
     Dosage: 18MG, DAILY
     Route: 062
     Dates: start: 20120224, end: 20120414
  7. EXELON [Suspect]
     Dosage: 9 MG, DAILY
     Route: 062
     Dates: start: 20111104, end: 20111201
  8. GALANTAMINE HYDROBROMIDE [Concomitant]
     Dosage: 8 MG, UNK
     Route: 048
     Dates: start: 20110720, end: 20111007

REACTIONS (9)
  - MIOSIS [None]
  - NAUSEA [None]
  - VOMITING [None]
  - HYPOAESTHESIA [None]
  - SOMNOLENCE [None]
  - DEPRESSED LEVEL OF CONSCIOUSNESS [None]
  - DYSLALIA [None]
  - PALPITATIONS [None]
  - FEELING ABNORMAL [None]
